FAERS Safety Report 5036251-5 (Version None)
Quarter: 2006Q2

REPORT INFORMATION
  Report Type: 
  Country: None (occurrence: None)
  Receive Date: 20060601
  Receipt Date: 20060428
  Transmission Date: 20061013
  Serious: No
  Sender: FDA-Public Use
  Company Number: US200605000161

PATIENT
  Sex: Male

DRUGS (1)
  1. CYMBALTA [Suspect]

REACTIONS (3)
  - BLOOD PRESSURE INCREASED [None]
  - PYREXIA [None]
  - TACHYCARDIA [None]
